FAERS Safety Report 19588634 (Version 1)
Quarter: 2021Q3

REPORT INFORMATION
  Report Type: Spontaneous
  Country: SA (occurrence: SA)
  Receive Date: 20210721
  Receipt Date: 20210721
  Transmission Date: 20211014
  Serious: Yes (Other)
  Sender: FDA-Public Use
  Company Number: SA-LOTUS-2021-LOTUS-000724

PATIENT
  Age: 14 Year
  Sex: Male

DRUGS (4)
  1. METHOTREXATE. [Suspect]
     Active Substance: METHOTREXATE
     Indication: T-CELL TYPE ACUTE LEUKAEMIA
     Dosage: WEEKLY
     Route: 048
  2. DEXAMETHASONE. [Suspect]
     Active Substance: DEXAMETHASONE
     Indication: T-CELL TYPE ACUTE LEUKAEMIA
     Dosage: 12?WEEK CYCLES OF MONTHLY VINCRISTINE DEXAMETHASONE PULSE THERAPY
  3. MERCAPTOPURINE. [Suspect]
     Active Substance: MERCAPTOPURINE
     Indication: T-CELL TYPE ACUTE LEUKAEMIA
     Dosage: DAILY ORAL 6?MERCAPTOPURINE
     Route: 048
  4. VINCRISTINE [Suspect]
     Active Substance: VINCRISTINE
     Indication: T-CELL TYPE ACUTE LEUKAEMIA
     Dosage: 12?WEEK CYCLES OF MONTHLY VINCRISTINE PULSE THERAPY

REACTIONS (2)
  - Cytomegalovirus chorioretinitis [Recovering/Resolving]
  - Varicella zoster virus infection [Recovered/Resolved]
